FAERS Safety Report 6685760-1 (Version None)
Quarter: 2010Q2

REPORT INFORMATION
  Report Type: 
  Country: None (occurrence: None)
  Receive Date: 20100419
  Receipt Date: 20100407
  Transmission Date: 20101027
  Serious: No
  Sender: FDA-Public Use
  Company Number: US-JNJFOC-20100305201

PATIENT
  Sex: Male
  Weight: 60.78 kg

DRUGS (8)
  1. FENTANYL-100 [Suspect]
     Indication: PAIN
     Dosage: 100 UG/HR+ 50 UG/HR
     Route: 062
  2. DURAGESIC-100 [Suspect]
     Indication: PAIN
     Route: 062
  3. DURAGESIC-100 [Suspect]
     Route: 062
  4. DURAGESIC-100 [Suspect]
     Dosage: 100 UG/HR + 50 UG/HR
     Route: 062
  5. DURAGESIC-100 [Suspect]
     Dosage: 100UG/HR+100UG/HR=150UG/HR
     Route: 062
  6. DURAGESIC-100 [Suspect]
     Route: 062
  7. VICODIN [Concomitant]
     Indication: BREAKTHROUGH PAIN
     Route: 048
  8. PROVIGIL [Concomitant]
     Indication: SOMNOLENCE
     Route: 048

REACTIONS (10)
  - ARTHRALGIA [None]
  - DEPRESSION [None]
  - INADEQUATE ANALGESIA [None]
  - INCOHERENT [None]
  - PAIN [None]
  - PAIN IN EXTREMITY [None]
  - THERAPEUTIC REACTION TIME DECREASED [None]
  - THERAPEUTIC RESPONSE DECREASED [None]
  - TREATMENT NONCOMPLIANCE [None]
  - WITHDRAWAL SYNDROME [None]
